FAERS Safety Report 10594492 (Version 1)
Quarter: 2014Q4

REPORT INFORMATION
  Report Type: Spontaneous
  Country: FR (occurrence: FR)
  Receive Date: 20141119
  Receipt Date: 20141119
  Transmission Date: 20150529
  Serious: Yes (Other)
  Sender: FDA-Public Use
  Company Number: PHHY2014FR150353

PATIENT
  Age: 53 Year
  Sex: Male

DRUGS (4)
  1. AVASTIN [Suspect]
     Active Substance: BEVACIZUMAB
     Indication: PRODUCT USED FOR UNKNOWN INDICATION
     Dosage: 340 MG, QD
     Route: 042
     Dates: start: 20140925, end: 20140925
  2. OXALIPLATINE ACCORD [Suspect]
     Active Substance: OXALIPLATIN
     Indication: PRODUCT USED FOR UNKNOWN INDICATION
     Dosage: 127 MG, QD
     Route: 042
     Dates: start: 20140925, end: 20140925
  3. 5-FLUOROURACIL SANDOZ [Suspect]
     Active Substance: FLUOROURACIL
     Dosage: 2050 MG, QD
     Route: 041
     Dates: start: 20140925, end: 20140926
  4. 5-FLUOROURACIL SANDOZ [Suspect]
     Active Substance: FLUOROURACIL
     Indication: PRODUCT USED FOR UNKNOWN INDICATION
     Dosage: 475 MG, UNK
     Route: 042
     Dates: start: 20140925, end: 20140925

REACTIONS (7)
  - Balance disorder [Recovered/Resolved]
  - Ototoxicity [Recovered/Resolved]
  - Hypoacusis [Recovered/Resolved]
  - Dizziness postural [Recovered/Resolved]
  - Dizziness [Recovered/Resolved]
  - Tinnitus [Recovered/Resolved]
  - Orthostatic hypotension [Recovered/Resolved]

NARRATIVE: CASE EVENT DATE: 20141105
